FAERS Safety Report 10932375 (Version 1)
Quarter: 2015Q1

REPORT INFORMATION
  Report Type: Spontaneous
  Country: US (occurrence: None)
  Receive Date: 20150319
  Receipt Date: 20150319
  Transmission Date: 20150721
  Serious: Yes (Disabling)
  Sender: FDA-Public Use
  Company Number: None

PATIENT
  Age: 60 Year
  Sex: Male
  Weight: 81.65 kg

DRUGS (12)
  1. ALPRAZOLAM (XANAX) [Concomitant]
  2. FEXOFENADINE HYDROCHLORIDE. [Concomitant]
     Active Substance: FEXOFENADINE HYDROCHLORIDE
  3. BAYER ASPIRIN [Concomitant]
     Active Substance: ASPIRIN
  4. METHYLPREDNISOLONE. [Suspect]
     Active Substance: METHYLPREDNISOLONE
     Indication: MULTIPLE SCLEROSIS RELAPSE
     Dosage: 4 PILLS, TAKEN BY MOUTH
     Route: 048
     Dates: start: 20141220, end: 20141224
  5. GILENYA [Concomitant]
     Active Substance: FINGOLIMOD HYDROCHLORIDE
  6. BRILINTA [Concomitant]
     Active Substance: TICAGRELOR
  7. PSYLLIUM FIBER [Concomitant]
  8. LIPITOR [Concomitant]
     Active Substance: ATORVASTATIN CALCIUM
  9. METOPROLOL SUCC ER (TOPROL XL) [Concomitant]
  10. FLUTICASONE [Concomitant]
     Active Substance: FLUTICASONE\FLUTICASONE PROPIONATE
  11. VITAMIN D3 [Concomitant]
     Active Substance: CHOLECALCIFEROL
  12. FISH OIL [Concomitant]
     Active Substance: FISH OIL

REACTIONS (4)
  - Muscle tightness [None]
  - Product substitution issue [None]
  - Hypoaesthesia [None]
  - Myalgia [None]

NARRATIVE: CASE EVENT DATE: 20141220
